FAERS Safety Report 21138106 (Version 1)
Quarter: 2022Q3

REPORT INFORMATION
  Report Type: Spontaneous
  Country: CA (occurrence: CA)
  Receive Date: 20220727
  Receipt Date: 20220727
  Transmission Date: 20221027
  Serious: Yes (Other)
  Sender: FDA-Public Use
  Company Number: CA-SAMSUNG BIOEPIS-SB-2022-18000

PATIENT
  Age: 66 Year
  Sex: Male
  Weight: 93 kg

DRUGS (2)
  1. INFLIXIMAB [Suspect]
     Active Substance: INFLIXIMAB
     Indication: Crohn^s disease
     Route: 042
  2. HYDROCORTISONE [Concomitant]
     Active Substance: HYDROCORTISONE
     Indication: Premedication
     Route: 065

REACTIONS (9)
  - Blood pressure increased [Recovered/Resolved]
  - Condition aggravated [Recovered/Resolved]
  - Eye irritation [Recovered/Resolved]
  - Infection [Recovered/Resolved]
  - Influenza [Recovered/Resolved]
  - Rash [Recovered/Resolved]
  - Weight decreased [Recovered/Resolved]
  - Intentional product use issue [Recovered/Resolved]
  - Off label use [Recovered/Resolved]
